FAERS Safety Report 13520439 (Version 2)
Quarter: 2017Q2

REPORT INFORMATION
  Report Type: Spontaneous
  Country: LU (occurrence: LU)
  Receive Date: 20170507
  Receipt Date: 20170525
  Transmission Date: 20170830
  Serious: Yes (Other)
  Sender: FDA-Public Use
  Company Number: LU-ROCHE-1931481

PATIENT
  Sex: Female
  Weight: 85 kg

DRUGS (7)
  1. PLAVIX [Concomitant]
     Active Substance: CLOPIDOGREL BISULFATE
     Dosage: 1 - 0 - 0
     Route: 048
  2. VASEXTEN [Concomitant]
     Active Substance: BARNIDIPINE HYDROCHLORIDE
     Dosage: 0 - 0 - 1
     Route: 048
  3. CRESTOR [Concomitant]
     Active Substance: ROSUVASTATIN CALCIUM
     Dosage: 1 - 0 - 0
     Route: 065
  4. ROACTEMRA [Suspect]
     Active Substance: TOCILIZUMAB
     Indication: RHEUMATOID ARTHRITIS
     Dosage: TOTAL MONTHLY DOSE WAS 680 MG
     Route: 042
     Dates: start: 201606, end: 2017
  5. COAPROVEL [Concomitant]
     Active Substance: HYDROCHLOROTHIAZIDE\IRBESARTAN
     Dosage: 1 - 0 - 0
     Route: 048
  6. KREDEX [Concomitant]
     Active Substance: CARVEDILOL
     Dosage: 1/2 - 0 - 0
     Route: 048
  7. NOVOMIX [Concomitant]
     Active Substance: INSULIN ASPART
     Dosage: 20 UI (MORNING) - 0 (MIDDAY) - 10 UI (EVENING)
     Route: 058

REACTIONS (1)
  - Endometrial cancer [Not Recovered/Not Resolved]
